FAERS Safety Report 15060073 (Version 3)
Quarter: 2018Q3

REPORT INFORMATION
  Report Type: Spontaneous
  Country: CN (occurrence: CN)
  Receive Date: 20180625
  Receipt Date: 20180720
  Transmission Date: 20181010
  Serious: Yes (Other)
  Sender: FDA-Public Use
  Company Number: CN-JNJFOC-20180624966

PATIENT
  Age: 53 Year
  Sex: Female

DRUGS (2)
  1. REMICADE [Suspect]
     Active Substance: INFLIXIMAB
     Indication: RHEUMATOID ARTHRITIS
     Dosage: 01/02?MAY?2018
     Route: 042
     Dates: start: 201804
  2. REMICADE [Suspect]
     Active Substance: INFLIXIMAB
     Indication: ANKYLOSING SPONDYLITIS
     Dosage: 01/02?MAY?2018
     Route: 042
     Dates: start: 201804

REACTIONS (1)
  - Pulmonary tuberculosis [Not Recovered/Not Resolved]

NARRATIVE: CASE EVENT DATE: 20180615
